FAERS Safety Report 12540132 (Version 1)
Quarter: 2016Q3

REPORT INFORMATION
  Report Type: Spontaneous
  Country: IT (occurrence: IT)
  Receive Date: 20160708
  Receipt Date: 20160708
  Transmission Date: 20161109
  Serious: Yes (Hospitalization, Other)
  Sender: FDA-Public Use
  Company Number: IT-CIPLA LTD.-2013IT00425

PATIENT

DRUGS (2)
  1. EPIRUBICIN [Suspect]
     Active Substance: EPIRUBICIN
     Dosage: UNK
     Route: 063
  2. EPIRUBICIN [Suspect]
     Active Substance: EPIRUBICIN
     Dosage: UNK, EXPOSED IN UTERO TO FOUR CYCLES
     Route: 064

REACTIONS (4)
  - Neonatal infection [Recovered/Resolved]
  - Ventricular hypokinesia [Recovered/Resolved]
  - Haemoglobin decreased [Unknown]
  - Foetal exposure during pregnancy [Unknown]
